FAERS Safety Report 8392793-6 (Version None)
Quarter: 2012Q1

REPORT INFORMATION
  Report Type: 
  Country: None (occurrence: None)
  Receive Date: 20120323
  Receipt Date: 20110310
  Transmission Date: 20120608
  Serious: Yes (Other)
  Sender: FDA-Public Use
  Company Number: 163-21880-11031478

PATIENT
  Age: 62 Year
  Sex: Female
  Weight: 60.782 kg

DRUGS (14)
  1. LOVENOX [Concomitant]
  2. VIT D (ERGOCALCIFEROL) [Concomitant]
  3. FLAXSEED OIL (LINSEED OIL) [Concomitant]
  4. ARANESP [Concomitant]
  5. TOPROL-XL [Concomitant]
  6. REVLIMID [Suspect]
     Indication: MULTIPLE MYELOMA
     Dosage: 10 MG, 1 IN 1 D, PO
     Route: 048
     Dates: start: 20090101, end: 20090101
  7. LASIX [Concomitant]
  8. POTASSIUM CHLORIDE [Concomitant]
  9. IMODIUM [Concomitant]
  10. PROMETHAZINE [Concomitant]
  11. NEXIUM [Concomitant]
  12. MULTIVITAMIN [Concomitant]
  13. SYNTHROID [Concomitant]
  14. LIPITOR [Concomitant]

REACTIONS (2)
  - HAEMOGLOBIN DECREASED [None]
  - PARAESTHESIA [None]
